FAERS Safety Report 9585307 (Version 1)
Quarter: 2013Q4

REPORT INFORMATION
  Report Type: Spontaneous
  Country: US (occurrence: US)
  Receive Date: 20131002
  Receipt Date: 20131002
  Transmission Date: 20140711
  Serious: No
  Sender: FDA-Public Use
  Company Number: US-AMGEN-USASP2013063795

PATIENT
  Age: 68 Year
  Sex: Female
  Weight: 99.77 kg

DRUGS (10)
  1. ENBREL [Suspect]
     Indication: PRODUCT USED FOR UNKNOWN INDICATION
     Dosage: 25 MG, 2 TIMES/WK
     Route: 058
  2. GLUCOPHAGE [Concomitant]
     Dosage: 1000 MG, UNK
  3. FOLIC ACID [Concomitant]
     Dosage: 20 MG, UNK
  4. ARAVA [Concomitant]
     Dosage: 10 MG, UNK
  5. ALPHA LIPOIC [Concomitant]
     Dosage: 300 MG, UNK
  6. B COMPLEX                          /00212701/ [Concomitant]
     Dosage: UNK
  7. LANTUS [Concomitant]
     Dosage: 100 ML, UNK
  8. VITAMIN D                          /00107901/ [Concomitant]
     Dosage: 2000 UNIT, UNK
  9. COQ-10 [Concomitant]
     Dosage: 100 MG, UNK
  10. NOVOLOG [Concomitant]
     Dosage: 100/ML

REACTIONS (2)
  - Drug ineffective [Unknown]
  - Pain [Unknown]
